FAERS Safety Report 22000101 (Version 1)
Quarter: 2023Q1

REPORT INFORMATION
  Report Type: Spontaneous
  Country: SE (occurrence: SE)
  Receive Date: 20230216
  Receipt Date: 20230216
  Transmission Date: 20230417
  Serious: Yes (Other)
  Sender: FDA-Public Use
  Company Number: None

PATIENT
  Age: 47 Year
  Sex: Female
  Weight: 72 kg

DRUGS (1)
  1. BUPROPION [Suspect]
     Active Substance: BUPROPION
     Indication: Depression
     Dosage: 150 MILLIGRAM DAILY;
     Route: 065
     Dates: start: 20210921, end: 20210924

REACTIONS (5)
  - Loss of consciousness [Not Recovered/Not Resolved]
  - Muscle spasms [Recovered/Resolved]
  - Tinnitus [Unknown]
  - Dizziness [Not Recovered/Not Resolved]
  - Arthralgia [Recovered/Resolved]

NARRATIVE: CASE EVENT DATE: 20210901
